FAERS Safety Report 19831136 (Version 8)
Quarter: 2022Q1

REPORT INFORMATION
  Report Type: Spontaneous
  Country: US (occurrence: US)
  Receive Date: 20210915
  Receipt Date: 20220121
  Transmission Date: 20220424
  Serious: Yes (Death, Life-Threatening, Hospitalization)
  Sender: FDA-Public Use
  Company Number: US-CELGENE-USA-20210903407

PATIENT
  Age: 62 Year
  Sex: Male
  Weight: 97.96 kg

DRUGS (13)
  1. POMALIDOMIDE [Suspect]
     Active Substance: POMALIDOMIDE
     Indication: Plasma cell myeloma
     Dosage: 4 MILLIGRAM
     Route: 048
     Dates: start: 20210315, end: 20210316
  2. PF-06863135 [Suspect]
     Active Substance: PF-06863135
     Indication: Plasma cell myeloma
     Dosage: 6.2857 MILLIGRAM
     Route: 058
     Dates: start: 20210301, end: 20210818
  3. AMLODIPINE [Concomitant]
     Active Substance: AMLODIPINE BESYLATE
     Indication: Hypertension
     Route: 065
     Dates: start: 20200515
  4. APIXABAN [Concomitant]
     Active Substance: APIXABAN
     Indication: Thrombosis
     Route: 065
     Dates: start: 20210413
  5. CALCIUM ASCORBATE [Concomitant]
     Active Substance: CALCIUM ASCORBATE
     Indication: Routine health maintenance
     Route: 065
     Dates: start: 20180922
  6. CHOLECALCIFEROL [Concomitant]
     Active Substance: CHOLECALCIFEROL
     Indication: Routine health maintenance
     Route: 065
     Dates: start: 20210301
  7. DOCUSATE SODIUM [Concomitant]
     Active Substance: DOCUSATE SODIUM
     Indication: Constipation
     Route: 065
     Dates: start: 20180301
  8. LORATADINE [Concomitant]
     Active Substance: LORATADINE
     Indication: Bone pain
     Route: 065
     Dates: start: 20160613
  9. METOPROLOL [Concomitant]
     Active Substance: METOPROLOL
     Indication: Arrhythmia prophylaxis
     Route: 065
     Dates: start: 20210422
  10. VALACYCLOVIR [Concomitant]
     Active Substance: VALACYCLOVIR HYDROCHLORIDE
     Indication: Infection prophylaxis
     Route: 065
     Dates: start: 20200515
  11. VITAMIN B COMPLEX [Concomitant]
     Active Substance: CYANOCOBALAMIN\DEXPANTHENOL\NIACINAMIDE\PYRIDOXINE HYDROCHLORIDE\RIBOFLAVIN 5^-PHOSPHATE SODIUM\THIA
     Indication: Routine health maintenance
     Route: 065
     Dates: start: 20180301
  12. ZINC GLUCONATE [Concomitant]
     Active Substance: ZINC GLUCONATE
     Indication: Routine health maintenance
     Route: 065
     Dates: start: 20180218
  13. CRESTOR [Concomitant]
     Active Substance: ROSUVASTATIN CALCIUM
     Indication: Blood cholesterol increased
     Route: 065
     Dates: start: 201605

REACTIONS (1)
  - Sepsis [Fatal]

NARRATIVE: CASE EVENT DATE: 20210818
